FAERS Safety Report 15374949 (Version 1)
Quarter: 2018Q3

REPORT INFORMATION
  Report Type: Spontaneous
  Country: NZ (occurrence: NZ)
  Receive Date: 20180912
  Receipt Date: 20180912
  Transmission Date: 20181010
  Serious: Yes (Other)
  Sender: FDA-Public Use
  Company Number: NZ-MYLANLABS-2018M1066904

PATIENT
  Sex: Female

DRUGS (1)
  1. ENLAFAX XR [Suspect]
     Active Substance: VENLAFAXINE HYDROCHLORIDE
     Indication: PRODUCT USED FOR UNKNOWN INDICATION
     Dosage: UNK
     Route: 048
     Dates: end: 201809

REACTIONS (6)
  - Sleep disorder [Unknown]
  - Asocial behaviour [Unknown]
  - Crying [Unknown]
  - Suicidal ideation [Unknown]
  - Depression [Unknown]
  - Paranoia [Unknown]
